FAERS Safety Report 23638169 (Version 1)
Quarter: 2024Q1

REPORT INFORMATION
  Report Type: Spontaneous
  Country: GB (occurrence: None)
  Receive Date: 20240315
  Receipt Date: 20240315
  Transmission Date: 20240409
  Serious: Yes (Other)
  Sender: FDA-Public Use
  Company Number: 2024A064146

PATIENT
  Age: 40 Year
  Sex: Female

DRUGS (16)
  1. OMEPRAZOLE [Suspect]
     Active Substance: OMEPRAZOLE
     Indication: Product used for unknown indication
     Dosage: 40 MG (MILLIGRAM) AT AN UNSPECIFIED FREQUENCY
     Route: 048
     Dates: start: 20240201
  2. SODIUM CITRATE [Suspect]
     Active Substance: SODIUM CITRATE
     Indication: Product used for unknown indication
     Dosage: CITRATE BUFFER PH 6.5-7.5/24A22CH00045
     Route: 042
     Dates: start: 20240213
  3. SODIUM CITRATE [Suspect]
     Active Substance: SODIUM CITRATE
     Indication: Product used for unknown indication
     Dosage: CITRATE BUFFER PH 6.5-7.5/24A22CH00045
     Route: 042
     Dates: start: 20240213
  4. SODIUM CITRATE [Suspect]
     Active Substance: SODIUM CITRATE
     Indication: Product used for unknown indication
     Dosage: CITRATE BUFFER PH 6.5-7.5/24A22CH00057
     Route: 042
     Dates: start: 20240213
  5. SODIUM CITRATE [Suspect]
     Active Substance: SODIUM CITRATE
     Indication: Product used for unknown indication
     Dosage: CITRATE BUFFER PH 6.5-7.5/24A25CH00018
     Route: 042
     Dates: start: 20240213
  6. DOLUTEGRAVIR SODIUM\LAMIVUDINE [Suspect]
     Active Substance: DOLUTEGRAVIR SODIUM\LAMIVUDINE
     Indication: Product used for unknown indication
     Dosage: 50/300 MG AT AN UNSPECIFIED FREQUENCY
     Dates: start: 20230504
  7. FLUCLOXACILLIN [Suspect]
     Active Substance: FLUCLOXACILLIN
     Indication: Cellulitis orbital
     Dosage: 24A22CH00045
     Route: 042
     Dates: start: 20240213
  8. FLUCLOXACILLIN [Suspect]
     Active Substance: FLUCLOXACILLIN
     Indication: Cellulitis orbital
     Dosage: 12 G (GRAM) AT AN UNSPECIFIED FREQUENCY/24A22CH00057
     Route: 042
     Dates: start: 20240213
  9. FLUCLOXACILLIN [Suspect]
     Active Substance: FLUCLOXACILLIN
     Indication: Cellulitis orbital
     Dosage: 24A25CH00018
     Route: 042
     Dates: start: 20240213
  10. SODIUM CHLORIDE [Suspect]
     Active Substance: SODIUM CHLORIDE
     Indication: Medication dilution
     Dosage: PL 08828/0034/24A22CH00057
     Dates: start: 20240213
  11. SODIUM CHLORIDE [Suspect]
     Active Substance: SODIUM CHLORIDE
     Indication: Medication dilution
     Dosage: 24A22CH00045
     Route: 042
     Dates: start: 20240213
  12. SODIUM CHLORIDE [Suspect]
     Active Substance: SODIUM CHLORIDE
     Indication: Medication dilution
     Dosage: 24A25CH00018
     Dates: start: 20240216
  13. TENOFOVIR [Suspect]
     Active Substance: TENOFOVIR
     Indication: Product used for unknown indication
     Dosage: 245 MG (MILLIGRAM) AT AN UNSPECIFIED FREQUENCY
     Route: 048
     Dates: start: 20230504
  14. STERILE WATER [Suspect]
     Active Substance: WATER
     Indication: Medication dilution
     Dosage: SOLVENT FOR PARENTERAL USE/24A22CH00045
     Dates: start: 20240213
  15. STERILE WATER [Suspect]
     Active Substance: WATER
     Indication: Medication dilution
     Dosage: SOLVENT FOR PARENTERAL USE (WATER FOR INJECTION)/24A22CH00057
     Route: 042
     Dates: start: 20240213
  16. STERILE WATER [Suspect]
     Active Substance: WATER
     Indication: Medication dilution
     Dosage: 24A25CH00018
     Route: 042
     Dates: start: 20240216

REACTIONS (1)
  - Thrombosis [Recovering/Resolving]

NARRATIVE: CASE EVENT DATE: 20240219
